FAERS Safety Report 10152194 (Version 1)
Quarter: 2014Q2

REPORT INFORMATION
  Report Type: Spontaneous
  Country: DE (occurrence: None)
  Receive Date: 20140501
  Receipt Date: 20140501
  Transmission Date: 20141212
  Serious: Yes (Hospitalization, Other)
  Sender: FDA-Public Use
  Company Number: SYM-2014-20027

PATIENT
  Sex: Male

DRUGS (6)
  1. ELIDEL 1 % (NOT SPECIFIED) [Suspect]
     Indication: PRODUCT USED FOR UNKNOWN INDICATION
  2. SANDIMMUN OPTORAL [Suspect]
     Indication: PEMPHIGOID
  3. SANDIMMUN OPTORAL [Suspect]
     Indication: OCULAR PEMPHIGOID
  4. DEXAMETHASONE SODIUM PHOSPHATE [Suspect]
     Indication: PRODUCT USED FOR UNKNOWN INDICATION
     Dosage: LEFT EYE DROPS 5X, RIGHT EYE DROPS 3X DAILY
  5. CELLCEPT (MYCOPHENOLATE MOFETIL) (MYCOPHENOLATE MOFETIL) [Suspect]
     Indication: PRODUCT USED FOR UNKNOWN INDICATION
  6. SOTALOL (SOTALOL) [Concomitant]

REACTIONS (33)
  - Off label use [None]
  - Symblepharon [None]
  - Optic atrophy [None]
  - Blood pressure increased [None]
  - Hepatic steatosis [None]
  - Gastritis [None]
  - Oesophageal adenocarcinoma [None]
  - Haemoglobin decreased [None]
  - Metastases to lymph nodes [None]
  - Metastases to liver [None]
  - Carcinoembryonic antigen increased [None]
  - Haemangioma of liver [None]
  - Keratitis [None]
  - Gastrooesophageal reflux disease [None]
  - Hypertension [None]
  - Benign prostatic hyperplasia [None]
  - Hyperlipidaemia [None]
  - Appendicectomy [None]
  - Fatigue [None]
  - Vomiting [None]
  - Visual acuity reduced [None]
  - Decreased appetite [None]
  - Amaurosis [None]
  - Ocular pemphigoid [None]
  - Abdominal adhesions [None]
  - Corneal oedema [None]
  - Osteoarthritis [None]
  - Intraocular pressure decreased [None]
  - Maculopathy [None]
  - Cholecystitis chronic [None]
  - Pneumoconiosis [None]
  - General physical health deterioration [None]
  - Post procedural haemorrhage [None]
